FAERS Safety Report 8285059-6 (Version None)
Quarter: 2012Q2

REPORT INFORMATION
  Report Type: 
  Country: None (occurrence: None)
  Receive Date: 20120413
  Receipt Date: 20111003
  Transmission Date: 20120825
  Serious: No
  Sender: FDA-Public Use
  Company Number: US-ASTRAZENECA-2011SE59084

PATIENT
  Age: 53 Year
  Sex: Female
  Weight: 96.2 kg

DRUGS (5)
  1. CRESTOR [Suspect]
     Indication: BLOOD CHOLESTEROL INCREASED
     Route: 048
  2. VERAPAMIL [Concomitant]
     Indication: BLOOD PRESSURE ABNORMAL
  3. NORAZEPAM [Concomitant]
     Indication: PANIC ATTACK
  4. BENICAR [Concomitant]
     Indication: BLOOD PRESSURE ABNORMAL
  5. NEXIUM [Suspect]
     Indication: GASTRIC DISORDER
     Route: 048

REACTIONS (1)
  - LIVER DISORDER [None]
